FAERS Safety Report 5627769-2 (Version None)
Quarter: 2008Q1

REPORT INFORMATION
  Report Type: 
  Country: None (occurrence: None)
  Receive Date: 20080215
  Receipt Date: 20080211
  Transmission Date: 20080703
  Serious: Yes (Other)
  Sender: FDA-Public Use
  Company Number: A0710005A

PATIENT
  Age: 4 Year
  Sex: Female

DRUGS (1)
  1. FLOVENT [Suspect]
     Indication: ASTHMA
     Dosage: 1PUFF TWICE PER DAY
     Route: 055
     Dates: start: 20070401

REACTIONS (8)
  - ADVERSE EVENT [None]
  - AGGRESSION [None]
  - ANGER [None]
  - CRYING [None]
  - FATIGUE [None]
  - HEADACHE [None]
  - MEDICATION ERROR [None]
  - SCREAMING [None]
